FAERS Safety Report 19993972 (Version 3)
Quarter: 2021Q4

REPORT INFORMATION
  Report Type: Spontaneous
  Country: US (occurrence: US)
  Receive Date: 20211026
  Receipt Date: 20211229
  Transmission Date: 20220303
  Serious: No
  Sender: FDA-Public Use
  Company Number: US-ORGANON-O2110USA001850

PATIENT
  Age: 78 Year
  Sex: Female

DRUGS (8)
  1. ASMANEX [Suspect]
     Active Substance: MOMETASONE FUROATE
     Indication: Asthma
     Dosage: 1 INHALATION AT NIGHT/ DAILY IN THE EVENINGS (220 MICROGRAM 30 DOSE)
     Dates: start: 20211013, end: 20211014
  2. ASMANEX [Suspect]
     Active Substance: MOMETASONE FUROATE
     Indication: Asthma
     Dosage: 1 PUFF DAILY
     Dates: start: 202110, end: 202110
  3. XYZAL [Concomitant]
     Active Substance: LEVOCETIRIZINE DIHYDROCHLORIDE
     Dosage: UNK
  4. ATORVASTATIN [Concomitant]
     Active Substance: ATORVASTATIN
     Dosage: UNK
  5. METOPROLOL [Concomitant]
     Active Substance: METOPROLOL
     Dosage: UNK
  6. ENALAPRIL [Concomitant]
     Active Substance: ENALAPRIL
     Dosage: UNK
  7. AMLODIPINE [Concomitant]
     Active Substance: AMLODIPINE BESYLATE
     Dosage: UNK
  8. METHOTREXATE [Concomitant]
     Active Substance: METHOTREXATE
     Dosage: UNK

REACTIONS (12)
  - Oral discomfort [Not Recovered/Not Resolved]
  - Oral mucosal erythema [Not Recovered/Not Resolved]
  - Stomatitis [Not Recovered/Not Resolved]
  - Mouth swelling [Not Recovered/Not Resolved]
  - Swelling face [Not Recovered/Not Resolved]
  - Device malfunction [Unknown]
  - Poor quality device used [Unknown]
  - Device difficult to use [Unknown]
  - Product dose omission issue [Unknown]
  - Device malfunction [Unknown]
  - Poor quality device used [Unknown]
  - Product outer packaging issue [Unknown]

NARRATIVE: CASE EVENT DATE: 20211001
